FAERS Safety Report 5935200-2 (Version None)
Quarter: 2008Q4

REPORT INFORMATION
  Report Type: 
  Country: None (occurrence: None)
  Receive Date: 20081030
  Receipt Date: 20081021
  Transmission Date: 20090506
  Serious: Yes (Other)
  Sender: FDA-Public Use
  Company Number: GB-ABBOTT-08P-167-0483274-00

PATIENT
  Age: 13 Year
  Sex: Male

DRUGS (2)
  1. VALPROATE SODIUM [Suspect]
     Indication: DRUG USE FOR UNKNOWN INDICATION
  2. TOPIRAMATE [Suspect]
     Indication: DRUG USE FOR UNKNOWN INDICATION
     Route: 048

REACTIONS (7)
  - ATAXIA [None]
  - CLUMSINESS [None]
  - CONVULSION [None]
  - DROP ATTACKS [None]
  - DRUG INEFFECTIVE [None]
  - FALL [None]
  - SOMNOLENCE [None]
